FAERS Safety Report 6679896-9 (Version None)
Quarter: 2010Q2

REPORT INFORMATION
  Report Type: 
  Country: None (occurrence: None)
  Receive Date: 20100413
  Receipt Date: 20100322
  Transmission Date: 20101027
  Serious: Yes (Death, Hospitalization, Other)
  Sender: FDA-Public Use
  Company Number: US-BAXTER-2009BH012328

PATIENT
  Age: 74 Year
  Sex: Female
  Weight: 95 kg

DRUGS (38)
  1. HEPARIN SODIUM INJECTION [Suspect]
     Indication: THROMBOSIS PROPHYLAXIS
     Route: 010
     Dates: start: 20071121
  2. HEPARIN SODIUM INJECTION [Suspect]
     Route: 010
     Dates: start: 20071227
  3. HEPARIN SODIUM INJECTION [Suspect]
     Route: 010
     Dates: start: 20080109
  4. HEPARIN SODIUM INJECTION [Suspect]
     Route: 010
     Dates: start: 20071229
  5. HEPARIN SODIUM INJECTION [Suspect]
     Route: 010
     Dates: start: 20070102
  6. HEPARIN SODIUM INJECTION [Suspect]
     Route: 010
     Dates: start: 20070105
  7. HEPARIN SODIUM INJECTION [Suspect]
     Route: 010
     Dates: start: 20070108
  8. HEPARIN SODIUM INJECTION [Suspect]
     Route: 010
     Dates: start: 20070110
  9. HEPARIN SODIUM INJECTION [Suspect]
     Route: 010
     Dates: start: 20070112
  10. HEPARIN SODIUM INJECTION [Suspect]
     Route: 010
     Dates: start: 20070115
  11. HEPARIN SODIUM INJECTION [Suspect]
     Route: 010
     Dates: start: 20070119
  12. HEPARIN SODIUM INJECTION [Suspect]
     Route: 010
     Dates: start: 20080109
  13. HEPARIN SODIUM INJECTION [Suspect]
     Route: 010
     Dates: start: 20070919
  14. HEPARIN SODIUM INJECTION [Suspect]
     Route: 010
     Dates: start: 20071031
  15. HEPARIN SODIUM INJECTION [Suspect]
     Route: 010
     Dates: start: 20071215, end: 20071215
  16. HEPARIN SODIUM INJECTION [Suspect]
     Route: 010
     Dates: start: 20071212, end: 20071212
  17. HEPARIN SODIUM INJECTION [Suspect]
     Route: 010
     Dates: start: 20071212, end: 20071212
  18. HEPARIN SODIUM INJECTION [Suspect]
     Route: 010
     Dates: start: 20071218, end: 20071218
  19. HEPARIN SODIUM INJECTION [Suspect]
     Route: 010
     Dates: start: 20071220, end: 20071220
  20. HEPARIN SODIUM INJECTION [Suspect]
     Route: 010
     Dates: start: 20071222, end: 20071222
  21. HEPARIN SODIUM INJECTION [Suspect]
     Route: 010
     Dates: start: 20071224, end: 20071224
  22. FUROSEMIDE [Concomitant]
     Indication: DRUG USE FOR UNKNOWN INDICATION
     Route: 048
  23. ELAVIL [Concomitant]
     Indication: DRUG USE FOR UNKNOWN INDICATION
     Route: 048
  24. PHOSLO [Concomitant]
     Indication: DRUG USE FOR UNKNOWN INDICATION
     Route: 048
  25. RENAGEL [Concomitant]
     Indication: DRUG USE FOR UNKNOWN INDICATION
     Route: 048
  26. DIATX [Concomitant]
     Indication: DRUG USE FOR UNKNOWN INDICATION
     Route: 048
  27. COZAAR [Concomitant]
     Indication: DRUG USE FOR UNKNOWN INDICATION
     Route: 048
  28. NPH INSULIN [Concomitant]
     Indication: DRUG USE FOR UNKNOWN INDICATION
     Route: 065
  29. NPH INSULIN [Concomitant]
     Route: 048
  30. INSULIN [Concomitant]
     Indication: DRUG USE FOR UNKNOWN INDICATION
     Route: 065
  31. ATORVASTATIN CALCIUM [Concomitant]
     Indication: DRUG USE FOR UNKNOWN INDICATION
     Route: 048
  32. SENSIPAR [Concomitant]
     Indication: DRUG USE FOR UNKNOWN INDICATION
     Route: 048
  33. DIPHENHYDRAMINE HYDROCHLORIDE [Concomitant]
     Indication: DRUG USE FOR UNKNOWN INDICATION
     Route: 048
  34. HYDROCODONE BITARTRATE [Concomitant]
     Indication: DRUG USE FOR UNKNOWN INDICATION
     Route: 048
  35. ANTIBIOTICS [Concomitant]
     Indication: DRUG USE FOR UNKNOWN INDICATION
     Route: 065
  36. IRON [Concomitant]
     Indication: DRUG USE FOR UNKNOWN INDICATION
     Route: 065
  37. EPOGEN [Concomitant]
     Indication: DRUG USE FOR UNKNOWN INDICATION
     Route: 065
  38. INSULIN [Concomitant]
     Route: 065

REACTIONS (11)
  - ABDOMINAL PAIN [None]
  - ATRIAL FIBRILLATION [None]
  - BACK PAIN [None]
  - BLOOD PRESSURE DECREASED [None]
  - CARDIAC ARREST [None]
  - CELLULITIS [None]
  - DYSPNOEA [None]
  - FATIGUE [None]
  - MYOCARDIAL INFARCTION [None]
  - SPEECH DISORDER [None]
  - URINARY TRACT INFECTION [None]
